FAERS Safety Report 9604554 (Version 4)
Quarter: 2013Q4

REPORT INFORMATION
  Report Type: Spontaneous
  Country: FR (occurrence: FR)
  Receive Date: 20131008
  Receipt Date: 20131118
  Transmission Date: 20140711
  Serious: Yes (Hospitalization)
  Sender: FDA-Public Use
  Company Number: FR-PFIZER INC-2013282983

PATIENT
  Age: 31 Year
  Sex: Female
  Weight: 57 kg

DRUGS (1)
  1. TRIFLUCAN [Suspect]
     Indication: GASTROINTESTINAL CANDIDIASIS
     Dosage: 1 DF, 2X/DAY (1 IN THE MORNING AND 1 IN THE EVENING)
     Route: 048
     Dates: start: 20130930, end: 20131001

REACTIONS (5)
  - Pharyngeal oedema [Recovered/Resolved]
  - Dysphagia [Recovered/Resolved]
  - Neuropathy peripheral [Recovered/Resolved]
  - Arthralgia [Recovered/Resolved]
  - Fatigue [Recovered/Resolved]
